FAERS Safety Report 9890841 (Version 3)
Quarter: 2014Q1

REPORT INFORMATION
  Report Type: Report from Study
  Country: PL (occurrence: PL)
  Receive Date: 20140212
  Receipt Date: 20140328
  Transmission Date: 20141002
  Serious: Yes (Other)
  Sender: FDA-Public Use
  Company Number: PL-ASTELLAS-2014US001074

PATIENT
  Sex: Female

DRUGS (2)
  1. TACROLIMUS OINTMENT [Suspect]
     Indication: DERMATITIS ATOPIC
     Dosage: 0.1 %, UNKNOWN/D
     Route: 061
     Dates: start: 20060309
  2. TACROLIMUS OINTMENT [Suspect]
     Dosage: 0.1 %, ONCE A DAY, TWICE WEEKLY
     Route: 061
     Dates: start: 2006

REACTIONS (2)
  - Off label use [Unknown]
  - Hyperthyroidism [Unknown]
